FAERS Safety Report 7405124-2 (Version None)
Quarter: 2011Q2

REPORT INFORMATION
  Report Type: 
  Country: None (occurrence: None)
  Receive Date: 20110411
  Receipt Date: 20110401
  Transmission Date: 20111010
  Serious: Yes (Other)
  Sender: FDA-Public Use
  Company Number: US-US-EMD SERONO, INC.-7050283

PATIENT
  Sex: Female
  Weight: 49 kg

DRUGS (7)
  1. REBIF [Suspect]
     Route: 058
     Dates: start: 20110101
  2. PERCOCET [Concomitant]
     Indication: PAIN
  3. ASPIRIN [Concomitant]
     Indication: PROPHYLAXIS
  4. REBIF [Suspect]
     Indication: MULTIPLE SCLEROSIS
     Route: 058
     Dates: start: 20110302, end: 20110101
  5. DIAZEPAM [Concomitant]
     Indication: NERVOUSNESS
  6. INSULIN [Concomitant]
     Indication: DIABETES MELLITUS
  7. MOTRIN [Concomitant]
     Indication: PAIN

REACTIONS (2)
  - CEREBROVASCULAR ACCIDENT [None]
  - BLOOD GLUCOSE INCREASED [None]
